FAERS Safety Report 25550687 (Version 1)
Quarter: 2025Q3

REPORT INFORMATION
  Report Type: Spontaneous
  Country: US (occurrence: US)
  Receive Date: 20250714
  Receipt Date: 20250714
  Transmission Date: 20251021
  Serious: No
  Sender: PFIZER
  Company Number: US-PFIZER INC-202500140139

PATIENT
  Age: 38 Year
  Sex: Female

DRUGS (2)
  1. EXEMESTANE [Suspect]
     Active Substance: EXEMESTANE
  2. LETROZOLE [Suspect]
     Active Substance: LETROZOLE

REACTIONS (5)
  - Arthralgia [Unknown]
  - Pain [Unknown]
  - Insomnia [Unknown]
  - Hot flush [Unknown]
  - Fatigue [Unknown]
